FAERS Safety Report 17164354 (Version 1)
Quarter: 2019Q4

REPORT INFORMATION
  Report Type: Report from Study
  Country: US (occurrence: US)
  Receive Date: 20191217
  Receipt Date: 20191217
  Transmission Date: 20200122
  Serious: No
  Sender: FDA-Public Use
  Company Number: NVSC2019US070237

PATIENT
  Age: 55 Year
  Sex: Female

DRUGS (3)
  1. COSENTYX [Suspect]
     Active Substance: SECUKINUMAB
     Dosage: UNK, Q2W
     Route: 065
  2. COSENTYX [Suspect]
     Active Substance: SECUKINUMAB
     Indication: PSORIASIS
     Dosage: UNK UNK, Q2W
     Route: 065
  3. COSENTYX [Suspect]
     Active Substance: SECUKINUMAB
     Indication: PSORIATIC ARTHROPATHY
     Dosage: UNK, Q3W
     Route: 065

REACTIONS (6)
  - Pain [Not Recovered/Not Resolved]
  - Weight increased [Unknown]
  - Taste disorder [Unknown]
  - Inappropriate schedule of product administration [Unknown]
  - Exostosis [Not Recovered/Not Resolved]
  - Therapeutic product effect incomplete [Unknown]
